FAERS Safety Report 26051692 (Version 1)
Quarter: 2025Q4

REPORT INFORMATION
  Report Type: Spontaneous
  Country: US (occurrence: US)
  Receive Date: 20251117
  Receipt Date: 20251117
  Transmission Date: 20260118
  Serious: No
  Sender: ALVOGEN
  Company Number: US-ALVOGEN-2025097411

PATIENT
  Sex: Female

DRUGS (3)
  1. TERIPARATIDE [Suspect]
     Active Substance: TERIPARATIDE
     Indication: Product used for unknown indication
     Dosage: ANOTHER PEN SHE WAS USING BEFORE HER COMPLAINT PRODUCT?STRENGTH: 250MCG/ML
  2. TERIPARATIDE [Suspect]
     Active Substance: TERIPARATIDE
     Indication: Product used for unknown indication
     Dosage: EXP: JUN-2025 ?S/N: 058344020025 ?STRENGTH: 250MCG/ML?GTIN: 00347781652890
     Dates: start: 2025
  3. TERIPARATIDE [Suspect]
     Active Substance: TERIPARATIDE
     Indication: Product used for unknown indication
     Dosage: BACK UP SUPPLY PEN FROM ALVOGEN ?STRENGTH: 250MCG/ML
     Dates: start: 2025

REACTIONS (6)
  - Device failure [Unknown]
  - Device malfunction [Unknown]
  - Device operational issue [Unknown]
  - Wrong technique in product usage process [Unknown]
  - Product storage error [Unknown]
  - Device defective [Unknown]

NARRATIVE: CASE EVENT DATE: 20250101
